FAERS Safety Report 5709828-9 (Version None)
Quarter: 2008Q2

REPORT INFORMATION
  Report Type: 
  Country: None (occurrence: None)
  Receive Date: 20080418
  Receipt Date: 20070312
  Transmission Date: 20081010
  Serious: No
  Sender: FDA-Public Use
  Company Number: US-ASTRAZENECA-2004UW10891

PATIENT
  Age: 65 Year
  Sex: Female
  Weight: 65.9 kg

DRUGS (11)
  1. TOPROL-XL [Suspect]
     Indication: HYPERTENSION
     Route: 048
     Dates: start: 20010101
  2. TOPROL-XL [Suspect]
     Indication: TACHYCARDIA
     Route: 048
     Dates: start: 20010101
  3. TOPROL-XL [Suspect]
     Route: 048
  4. TOPROL-XL [Suspect]
     Route: 048
  5. TOPROL-XL [Suspect]
     Route: 048
  6. TOPROL-XL [Suspect]
     Route: 048
  7. TOPROL-XL [Suspect]
     Dosage: 75 MG QAM, 37.5 QHS
     Route: 048
  8. TOPROL-XL [Suspect]
     Dosage: 75 MG QAM, 37.5 QHS
     Route: 048
  9. VITAMIN CAP [Concomitant]
  10. CALCIUM [Concomitant]
  11. ASPIRIN [Concomitant]

REACTIONS (13)
  - ABNORMAL DREAMS [None]
  - CYSTITIS [None]
  - DYSPHONIA [None]
  - FATIGUE [None]
  - FEELING ABNORMAL [None]
  - MEMORY IMPAIRMENT [None]
  - MOTION SICKNESS [None]
  - NAUSEA [None]
  - PAROSMIA [None]
  - PHOTOSENSITIVITY REACTION [None]
  - TINNITUS [None]
  - URINARY TRACT INFECTION [None]
  - VISUAL DISTURBANCE [None]
